FAERS Safety Report 4475889-0 (Version None)
Quarter: 2004Q4

REPORT INFORMATION
  Report Type: 
  Country: None (occurrence: None)
  Receive Date: 20041012
  Receipt Date: 20040928
  Transmission Date: 20050328
  Serious: Yes (Hospitalization)
  Sender: FDA-Public Use
  Company Number: 2004236513US

PATIENT
  Sex: Female

DRUGS (1)
  1. CELEBREX [Suspect]
     Indication: MUSCLE DISORDER
     Dosage: 200 MG, QD
     Dates: start: 19991117

REACTIONS (1)
  - CARDIAC DISORDER [None]
